FAERS Safety Report 9723298 (Version 3)
Quarter: 2013Q4

REPORT INFORMATION
  Report Type: Spontaneous
  Country: JP (occurrence: JP)
  Receive Date: 20131202
  Receipt Date: 20131210
  Transmission Date: 20140711
  Serious: Yes (Other)
  Sender: FDA-Public Use
  Company Number: JP-OTSUKA-JP-2013-15574

PATIENT
  Age: 64 Year
  Sex: Male

DRUGS (7)
  1. SAMSCA [Suspect]
     Indication: OEDEMA DUE TO HEPATIC DISEASE
     Dosage: 7.5 MG MILLIGRAM(S), DAILY DOSE
     Route: 048
     Dates: start: 20131113, end: 20131113
  2. SAMSCA [Suspect]
     Dosage: 3.75 MG MILLIGRAM(S), DAILY DOSE
     Route: 048
     Dates: start: 20131114, end: 20131119
  3. SAMSCA [Suspect]
     Dosage: 7.5 MG MILLIGRAM(S), DAILY DOSE
     Route: 048
     Dates: start: 20131120, end: 20131125
  4. ALBUMIN [Concomitant]
     Dosage: UNK
  5. LASIX [Concomitant]
     Dosage: 40 MG MILLIGRAM(S), QD
     Route: 042
     Dates: end: 20131118
  6. LASIX [Concomitant]
     Dosage: 40 MG MILLIGRAM(S), BID
     Route: 042
     Dates: start: 20131119
  7. ALDACTONE A [Concomitant]
     Dosage: 25 MG MILLIGRAM(S), DAILY DOSE
     Route: 048

REACTIONS (2)
  - Blood sodium decreased [Recovered/Resolved]
  - Diarrhoea [Recovered/Resolved]
